FAERS Safety Report 11096177 (Version 1)
Quarter: 2015Q2

REPORT INFORMATION
  Report Type: Spontaneous
  Country: US (occurrence: None)
  Receive Date: 20150505
  Receipt Date: 20150505
  Transmission Date: 20150821
  Serious: Yes (Hospitalization)
  Sender: FDA-Public Use
  Company Number: 2848200

PATIENT
  Age: 36 Year
  Sex: Male

DRUGS (14)
  1. FENTANYL CITRATE. [Suspect]
     Active Substance: FENTANYL CITRATE
     Indication: PAIN
     Dosage: 150 UG MICROGRAM(S), 1 HOUR
     Route: 041
  2. LORAZEPAM. [Concomitant]
     Active Substance: LORAZEPAM
  3. FENTANYL CITRATE. [Suspect]
     Active Substance: FENTANYL CITRATE
     Indication: ANALGESIC THERAPY
     Dosage: 150 UG MICROGRAM(S), 1 HOUR
     Route: 041
  4. ATOMOXETINE [Concomitant]
     Active Substance: ATOMOXETINE
  5. CEFEPIME [Concomitant]
     Active Substance: CEFEPIME\CEFEPIME HYDROCHLORIDE
  6. OXYCODONE [Concomitant]
     Active Substance: OXYCODONE
  7. DIAZEPAM. [Concomitant]
     Active Substance: DIAZEPAM
  8. FENTANYL CITRATE. [Suspect]
     Active Substance: FENTANYL CITRATE
     Indication: SEDATION
     Dosage: 150 UG MICROGRAM(S), 1 HOUR
     Route: 041
  9. VANCOMYCIN [Concomitant]
     Active Substance: VANCOMYCIN
  10. VECURONIUM [Concomitant]
     Active Substance: VECURONIUM BROMIDE
  11. VORICONAZOLE. [Concomitant]
     Active Substance: VORICONAZOLE
  12. CLONAZEPINE [Concomitant]
     Active Substance: CLONAZEPAM
  13. FENTANYL CITRATE. [Suspect]
     Active Substance: FENTANYL CITRATE
     Dosage: 150 UG MICROGRAM(S), 1 HOUR
     Route: 041
  14. METHADONE [Suspect]
     Active Substance: METHADONE HYDROCHLORIDE
     Indication: ANALGESIC THERAPY
     Dosage: 30 MG MILLIGRAM(S) 1 HOUR

REACTIONS (2)
  - Drug interaction [None]
  - Serotonin syndrome [None]
